FAERS Safety Report 7331820-1 (Version None)
Quarter: 2011Q1

REPORT INFORMATION
  Report Type: 
  Country: None (occurrence: None)
  Receive Date: 20110304
  Receipt Date: 20110224
  Transmission Date: 20110831
  Serious: Yes (Hospitalization, Disabling)
  Sender: FDA-Public Use
  Company Number: DE-AMGEN-DEUNI2011010806

PATIENT
  Age: 72 Year
  Sex: Female

DRUGS (2)
  1. ROMIPLOSTIM [Suspect]
     Indication: IDIOPATHIC THROMBOCYTOPENIC PURPURA
     Dosage: 200 A?G, QWK
     Route: 058
     Dates: start: 20090705, end: 20110124
  2. METFORMIN [Concomitant]
     Dosage: 850 MG, BID
     Route: 048

REACTIONS (2)
  - DEEP VEIN THROMBOSIS [None]
  - ISCHAEMIA [None]
